FAERS Safety Report 9193029 (Version 3)
Quarter: 2013Q2

REPORT INFORMATION
  Report Type: Spontaneous
  Country: JP (occurrence: JP)
  Receive Date: 20130327
  Receipt Date: 20130517
  Transmission Date: 20140414
  Serious: Yes (Death, Other)
  Sender: FDA-Public Use
  Company Number: PHHY2013JP029206

PATIENT
  Age: 72 Year
  Sex: Male

DRUGS (8)
  1. CARBOPLATIN SANDOZ [Suspect]
     Indication: SMALL CELL LUNG CANCER
     Dates: start: 20100325
  2. CARBOPLATIN SANDOZ [Suspect]
     Indication: CHEMOTHERAPY
     Dates: start: 20100907
  3. IRINOTECAN [Suspect]
     Indication: SMALL CELL LUNG CANCER
     Dates: start: 20100325
  4. IRINOTECAN [Suspect]
     Indication: CHEMOTHERAPY
     Dates: start: 20100623
  5. ETOPOSIDE [Suspect]
     Indication: CHEMOTHERAPY
     Dates: start: 20100907
  6. VINCRISTINE [Suspect]
     Indication: LYMPHOMA
     Dates: start: 20100222
  7. PREDNISOLONE [Suspect]
     Indication: LYMPHOMA
     Dates: start: 20100222
  8. CYCLOPHOSPHAMIDE [Suspect]
     Indication: LYMPHOMA
     Dates: start: 20100222

REACTIONS (7)
  - Small cell lung cancer [Fatal]
  - Lymphadenopathy [Fatal]
  - Malignant neoplasm progression [Fatal]
  - Lymphoplasmacytoid lymphoma/immunocytoma [Fatal]
  - Anaemia [Recovering/Resolving]
  - Oedema peripheral [Unknown]
  - General physical health deterioration [Unknown]
